FAERS Safety Report 6294789-7 (Version None)
Quarter: 2009Q3

REPORT INFORMATION
  Report Type: 
  Country: None (occurrence: None)
  Receive Date: 20090730
  Receipt Date: 20080730
  Transmission Date: 20100115
  Serious: No
  Sender: FDA-Public Use
  Company Number: 2008-1166(0)

PATIENT
  Age: 69 Year
  Sex: Female
  Weight: 99.8 kg

DRUGS (18)
  1. LANREOTIDE AUTOGEL (LANREOTIDE) (LANREOTIDE ACETATE) [Suspect]
     Dosage: (90 MG, 1 IN 28 D), SUBCUTANEOUS
     Route: 058
     Dates: start: 20080709, end: 20080903
  2. ALLOPURINOL [Concomitant]
  3. MODURETIC 5-50 [Concomitant]
  4. POTASSIUM CHLORIDE [Concomitant]
  5. ACTONEL [Concomitant]
  6. WELCHOL [Concomitant]
  7. BENICAR [Concomitant]
  8. PROZAC [Concomitant]
  9. SYNTHROID [Concomitant]
  10. AGGRENOX [Concomitant]
  11. BYETTA [Concomitant]
  12. METFORMIN HCL [Concomitant]
  13. TRICOR [Concomitant]
  14. ASPIRIN [Concomitant]
  15. CLIMARA PATCH (ESTRADIOL) [Concomitant]
  16. MULTI VITAMIN (MULTIVITAMIN /00831701/) [Concomitant]
  17. VITAMIN E [Concomitant]
  18. VITAMIN B12 [Concomitant]

REACTIONS (10)
  - ALOPECIA [None]
  - FATIGUE [None]
  - HYPERHIDROSIS [None]
  - INJECTION SITE HAEMORRHAGE [None]
  - INJECTION SITE NODULE [None]
  - INJECTION SITE PRURITUS [None]
  - INSULIN-LIKE GROWTH FACTOR INCREASED [None]
  - MYALGIA [None]
  - TENDERNESS [None]
  - WEIGHT INCREASED [None]
